FAERS Safety Report 14211373 (Version 4)
Quarter: 2017Q4

REPORT INFORMATION
  Report Type: Spontaneous
  Country: ES (occurrence: ES)
  Receive Date: 20171121
  Receipt Date: 20171208
  Transmission Date: 20180321
  Serious: Yes (Hospitalization)
  Sender: FDA-Public Use
  Company Number: ES-ACORDA-ACO_144323_2017

PATIENT
  Age: 29 Year
  Sex: Female

DRUGS (1)
  1. QUTENZA [Suspect]
     Active Substance: CAPSAICIN
     Indication: COMPLEX REGIONAL PAIN SYNDROME
     Dosage: UNK, UNK, UNKNOWN FREQ.
     Route: 003
     Dates: start: 20171103, end: 20171103

REACTIONS (1)
  - Application site reaction [Recovered/Resolved]

NARRATIVE: CASE EVENT DATE: 20171103
